FAERS Safety Report 9887347 (Version 1)
Quarter: 2014Q1

REPORT INFORMATION
  Report Type: Other
  Country: IT (occurrence: IT)
  Receive Date: 20140211
  Receipt Date: 20140211
  Transmission Date: 20141002
  Serious: Yes (Other)
  Sender: FDA-Public Use
  Company Number: IT-BRISTOL-MYERS SQUIBB COMPANY-20143194

PATIENT
  Age: 67 Year
  Sex: Male

DRUGS (5)
  1. METFORMIN HCL [Suspect]
  2. PANTOPRAZOLE [Suspect]
  3. CARDIOASPIRIN [Concomitant]
  4. RAMIPRIL [Concomitant]
  5. ATORVASTATIN [Concomitant]

REACTIONS (6)
  - Hypomagnesaemia [Recovering/Resolving]
  - Hypocalcaemia [Unknown]
  - Hypokalaemia [Unknown]
  - Ataxia [Recovering/Resolving]
  - Tremor [Recovering/Resolving]
  - Vertigo [Recovering/Resolving]
